FAERS Safety Report 10189152 (Version 6)
Quarter: 2014Q3

REPORT INFORMATION
  Report Type: Spontaneous
  Country: US (occurrence: US)
  Receive Date: 20140522
  Receipt Date: 20140725
  Transmission Date: 20150326
  Serious: Yes (Death, Hospitalization, Other)
  Sender: FDA-Public Use
  Company Number: US-BAXTER-2014BAX025795

PATIENT
  Age: 80 Year
  Sex: Male

DRUGS (1)
  1. DIANEAL LOW CALCIUM PERITONEAL DIALYSIS SOLUTION WITH DEXTROSE [Suspect]
     Active Substance: CALCIUM CHLORIDE\DEXTROSE\MAGNESIUM CHLORIDE\SODIUM CHLORIDE\SODIUM LACTATE
     Indication: PERITONEAL DIALYSIS
     Dosage: 2 BAGS
     Route: 033
     Dates: end: 20140611

REACTIONS (7)
  - Death [Fatal]
  - Cardiac arrest [Unknown]
  - Respiratory failure [Not Recovered/Not Resolved]
  - Fall [Unknown]
  - Renal failure chronic [Unknown]
  - Personality change [Unknown]
  - Hypotension [Unknown]

NARRATIVE: CASE EVENT DATE: 20140505
